FAERS Safety Report 5929435-2 (Version None)
Quarter: 2008Q3

REPORT INFORMATION
  Report Type: 
  Country: None (occurrence: None)
  Receive Date: 20080922
  Receipt Date: 20080814
  Transmission Date: 20090109
  Serious: Yes (Other)
  Sender: FDA-Public Use
  Company Number: PHEH2008US07191

PATIENT
  Sex: Female

DRUGS (1)
  1. MIACALCIN [Suspect]
     Dosage: NASAL
     Route: 045

REACTIONS (5)
  - DYSPNOEA [None]
  - HYPERTENSION [None]
  - INSOMNIA [None]
  - MEMORY IMPAIRMENT [None]
  - PAIN [None]
